FAERS Safety Report 20686948 (Version 2)
Quarter: 2022Q2

REPORT INFORMATION
  Report Type: Spontaneous
  Country: GB (occurrence: None)
  Receive Date: 20220407
  Receipt Date: 20220425
  Transmission Date: 20220721
  Serious: Yes (Other)
  Sender: FDA-Public Use
  Company Number: GB-ROCHE-3066042

PATIENT
  Sex: Female
  Weight: 87.7 kg

DRUGS (2)
  1. PHESGO [Suspect]
     Active Substance: HYALURONIDASE-ZZXF\PERTUZUMAB\TRASTUZUMAB
     Indication: HER2 positive breast cancer
     Dosage: 1200/600
     Route: 058
     Dates: start: 20211231
  2. DOCETAXEL [Suspect]
     Active Substance: DOCETAXEL
     Indication: HER2 positive breast cancer
     Route: 065

REACTIONS (2)
  - Deep vein thrombosis [Recovered/Resolved]
  - Deep vein thrombosis [Recovering/Resolving]

NARRATIVE: CASE EVENT DATE: 20220101
